FAERS Safety Report 6399714-6 (Version None)
Quarter: 2009Q4

REPORT INFORMATION
  Report Type: 
  Country: None (occurrence: None)
  Receive Date: 20091014
  Receipt Date: 20091007
  Transmission Date: 20100525
  Serious: Yes (Other)
  Sender: FDA-Public Use
  Company Number: US-BAYER-200934993GPV

PATIENT

DRUGS (2)
  1. CAMPATH [Suspect]
     Indication: ACUTE LYMPHOCYTIC LEUKAEMIA
     Dosage: OVER 2 HOURS
     Route: 042
  2. CAMPATH [Suspect]
     Dosage: OVER 2 HOURS
     Route: 042

REACTIONS (1)
  - LARYNGEAL OEDEMA [None]
